FAERS Safety Report 7230069-0 (Version None)
Quarter: 2011Q1

REPORT INFORMATION
  Report Type: 
  Country: None (occurrence: None)
  Receive Date: 20110118
  Receipt Date: 20110107
  Transmission Date: 20110831
  Serious: No
  Sender: FDA-Public Use
  Company Number: US-BIOGENIDEC-2010BI025300

PATIENT
  Sex: Female

DRUGS (1)
  1. TYSABRI [Suspect]
     Indication: MULTIPLE SCLEROSIS
     Route: 042
     Dates: start: 20090508

REACTIONS (21)
  - JOINT SWELLING [None]
  - DYSPEPSIA [None]
  - PHARYNGEAL ULCERATION [None]
  - HYPERHIDROSIS [None]
  - ASTHENIA [None]
  - CONTUSION [None]
  - INTESTINAL OBSTRUCTION [None]
  - THROAT IRRITATION [None]
  - VIITH NERVE PARALYSIS [None]
  - VISUAL IMPAIRMENT [None]
  - NEPHROLITHIASIS [None]
  - INFLUENZA [None]
  - BACK PAIN [None]
  - DEPRESSION [None]
  - GASTRIC ULCER [None]
  - SALT CRAVING [None]
  - FATIGUE [None]
  - OEDEMA PERIPHERAL [None]
  - GAIT DISTURBANCE [None]
  - CARDIAC FLUTTER [None]
  - URTICARIA [None]
